FAERS Safety Report 7710969-5 (Version None)
Quarter: 2011Q3

REPORT INFORMATION
  Report Type: 
  Country: None (occurrence: None)
  Receive Date: 20110825
  Receipt Date: 20110811
  Transmission Date: 20111222
  Serious: Yes (Hospitalization, Disabling, Other)
  Sender: FDA-Public Use
  Company Number: FR-SPECTRUM PHARMACEUTICALS, INC.-11-Z-FR-00183

PATIENT

DRUGS (16)
  1. PREDNISONE [Concomitant]
  2. NEXIUM [Concomitant]
  3. ZEVALIN [Suspect]
     Dosage: UNK
     Dates: start: 20101008, end: 20101008
  4. CALCIUM CARBONATE [Concomitant]
  5. HYDROCORTISONE [Concomitant]
  6. LOVENOX [Concomitant]
  7. BISOPROLOL FUMARATE [Concomitant]
  8. NEORAL [Concomitant]
  9. ZEVALIN [Suspect]
     Indication: NON-HODGKIN'S LYMPHOMA
  10. LEKOVIT CA [Concomitant]
  11. GRANOCYTE                          /01003403/ [Concomitant]
  12. FLUDARABINE PHOSPHATE [Suspect]
     Indication: PRODUCT USED FOR UNKNOWN INDICATION
     Route: 042
  13. ATOVAQUONE [Concomitant]
  14. ZELITREX                           /01269701/ [Concomitant]
     Dosage: 500 MG, UNK
  15. LEXOMIL [Concomitant]
  16. ROMIPLOSTIN [Concomitant]

REACTIONS (23)
  - HYPONATRAEMIA [None]
  - RENAL FAILURE [None]
  - DYSPHAGIA [None]
  - HYPOPROTEINAEMIA [None]
  - BLOOD ALKALINE PHOSPHATASE [None]
  - DIABETES MELLITUS [None]
  - POLLAKIURIA [None]
  - CANDIDIASIS [None]
  - ACUTE GRAFT VERSUS HOST DISEASE IN SKIN [None]
  - PANCYTOPENIA [None]
  - C-REACTIVE PROTEIN INCREASED [None]
  - DYSURIA [None]
  - HYPOREFLEXIA [None]
  - HYPOAESTHESIA [None]
  - KLEBSIELLA INFECTION [None]
  - CORONARY ARTERY INSUFFICIENCY [None]
  - RECTAL HAEMORRHAGE [None]
  - WHITE BLOOD CELL COUNT DECREASED [None]
  - CHOLESTASIS [None]
  - MYOPATHY [None]
  - HYPERTHERMIA [None]
  - HYPOALBUMINAEMIA [None]
  - GAMMA-GLUTAMYLTRANSFERASE [None]
